FAERS Safety Report 9686381 (Version 1)
Quarter: 2013Q4

REPORT INFORMATION
  Report Type: Other
  Country: TR (occurrence: TR)
  Receive Date: 20131113
  Receipt Date: 20131113
  Transmission Date: 20140711
  Serious: Yes (Hospitalization)
  Sender: FDA-Public Use
  Company Number: TR-BRISTOL-MYERS SQUIBB COMPANY-19806173

PATIENT
  Age: 35 Year
  Sex: Female

DRUGS (2)
  1. METFORMIN HCL [Suspect]
  2. ROSIGLITAZONE [Suspect]
     Route: 048

REACTIONS (8)
  - Suicide attempt [Recovered/Resolved]
  - Hypotension [Recovered/Resolved]
  - Hypoglycaemia [Recovered/Resolved]
  - Metabolic acidosis [Recovered/Resolved]
  - Hypothermia [Recovered/Resolved]
  - Lipidosis [Recovered/Resolved]
  - Hepatic enzyme increased [Recovered/Resolved]
  - Overdose [Recovered/Resolved]
